FAERS Safety Report 4579515-1 (Version None)
Quarter: 2005Q1

REPORT INFORMATION
  Report Type: 
  Country: None (occurrence: None)
  Receive Date: 20050209
  Receipt Date: 20050131
  Transmission Date: 20050727
  Serious: Yes (Death)
  Sender: FDA-Public Use
  Company Number: DE_041214928

PATIENT
  Age: 66 Year
  Sex: Female

DRUGS (4)
  1. EVISTA [Suspect]
     Indication: OSTEOPOROSIS
     Dosage: 60 MG DAY
     Dates: start: 20041129, end: 20041130
  2. NEXIUM [Concomitant]
  3. BISOHEXAL PLUS [Concomitant]
  4. ENALAPRIL [Concomitant]

REACTIONS (6)
  - BACK PAIN [None]
  - BLOOD PRESSURE INCREASED [None]
  - CIRCULATORY COLLAPSE [None]
  - NAUSEA [None]
  - PULMONARY EMBOLISM [None]
  - RETCHING [None]
